FAERS Safety Report 17247456 (Version 2)
Quarter: 2020Q1

REPORT INFORMATION
  Report Type: Spontaneous
  Country: JP (occurrence: JP)
  Receive Date: 20200108
  Receipt Date: 20200304
  Transmission Date: 20200409
  Serious: Yes (Other)
  Sender: FDA-Public Use
  Company Number: JP-ROCHE-2508155

PATIENT
  Age: 70 Year
  Sex: Male

DRUGS (1)
  1. RANIBIZUMAB. [Suspect]
     Active Substance: RANIBIZUMAB
     Indication: AGE-RELATED MACULAR DEGENERATION
     Route: 050
     Dates: start: 20110331

REACTIONS (2)
  - Disease progression [Unknown]
  - Polypoidal choroidal vasculopathy [Not Recovered/Not Resolved]

NARRATIVE: CASE EVENT DATE: 201407
